FAERS Safety Report 16890189 (Version 4)
Quarter: 2019Q4

REPORT INFORMATION
  Report Type: Report from Study
  Country: DE (occurrence: DE)
  Receive Date: 20191007
  Receipt Date: 20191210
  Transmission Date: 20200122
  Serious: Yes (Death, Life-Threatening, Hospitalization, Other)
  Sender: FDA-Public Use
  Company Number: DE-ROCHE-1432984

PATIENT
  Age: 63 Year
  Sex: Male
  Weight: 95 kg

DRUGS (12)
  1. HYDROCHLOROTHIAZIDE. [Concomitant]
     Active Substance: HYDROCHLOROTHIAZIDE
     Route: 065
  2. SIMVASTATIN. [Concomitant]
     Active Substance: SIMVASTATIN
     Route: 065
  3. BEVACIZUMAB. [Suspect]
     Active Substance: BEVACIZUMAB
     Dosage: THE LAST DOSE WAS ADMINISTERED WAS ON 24/NOV/2011
     Route: 042
     Dates: start: 20111103
  4. CAPECITABINE. [Suspect]
     Active Substance: CAPECITABINE
     Indication: COLORECTAL CANCER METASTATIC
     Dosage: ON DAY1 (21 CYCLE)?DATE OF LAST DOSE PRIOR TO SAE: 16/FEB/2012
     Route: 042
     Dates: start: 20120126, end: 20120224
  5. BEVACIZUMAB. [Suspect]
     Active Substance: BEVACIZUMAB
     Indication: COLORECTAL CANCER METASTATIC
     Dosage: ON DAY1 (21 CYCLE). THE LAST DOSE WAS ADMINISTERED WAS ON 16/FEB/2012
     Route: 042
     Dates: start: 20111103, end: 20120216
  6. IRINOTECAN [Suspect]
     Active Substance: IRINOTECAN
     Route: 042
     Dates: start: 20120126, end: 20120216
  7. RAMIPRIL. [Concomitant]
     Active Substance: RAMIPRIL
     Route: 065
  8. AMLODIPINE [Concomitant]
     Active Substance: AMLODIPINE BESYLATE
  9. CAPECITABINE. [Suspect]
     Active Substance: CAPECITABINE
     Route: 048
     Dates: start: 20111103, end: 20120224
  10. PANTOPRAZOLE [Concomitant]
     Active Substance: PANTOPRAZOLE
     Route: 065
  11. INSULIN [Concomitant]
     Active Substance: INSULIN NOS
  12. IRINOTECAN [Suspect]
     Active Substance: IRINOTECAN
     Indication: COLORECTAL CANCER METASTATIC
     Dosage: DAY 1-14 OF A 21 DAY CYCLE. THE LAST DOSE WAS ADMINISTERED WAS ON 16/FEB/2012
     Route: 048
     Dates: start: 20111103, end: 20120216

REACTIONS (7)
  - Diarrhoea [Fatal]
  - Haematotoxicity [Unknown]
  - Febrile neutropenia [Unknown]
  - Hypokalaemia [Unknown]
  - Neutropenic sepsis [Not Recovered/Not Resolved]
  - Hepatotoxicity [Unknown]
  - Infection [Unknown]

NARRATIVE: CASE EVENT DATE: 20120224
